FAERS Safety Report 21825241 (Version 1)
Quarter: 2023Q1

REPORT INFORMATION
  Report Type: Report from Study
  Country: US (occurrence: US)
  Receive Date: 20230105
  Receipt Date: 20230105
  Transmission Date: 20230418
  Serious: Yes (Other)
  Sender: FDA-Public Use
  Company Number: US-JNJFOC-20230105139

PATIENT
  Age: 59 Year
  Sex: Female

DRUGS (2)
  1. SPRAVATO [Suspect]
     Active Substance: ESKETAMINE
     Indication: Depression
     Dates: start: 20221128
  2. SPRAVATO [Suspect]
     Active Substance: ESKETAMINE
     Dates: start: 20221226

REACTIONS (7)
  - Hallucination, visual [Unknown]
  - Suicidal ideation [Unknown]
  - Insomnia [Unknown]
  - Hyperacusis [Not Recovered/Not Resolved]
  - Vision blurred [Unknown]
  - Depression [Unknown]
  - Feeling abnormal [Unknown]

NARRATIVE: CASE EVENT DATE: 20220101
